FAERS Safety Report 10021689 (Version 1)
Quarter: 2014Q1

REPORT INFORMATION
  Report Type: Spontaneous
  Country: US (occurrence: None)
  Receive Date: 20140318
  Receipt Date: 20140318
  Transmission Date: 20141002
  Serious: Yes (Life-Threatening, Hospitalization, Disabling)
  Sender: FDA-Public Use
  Company Number: None

PATIENT
  Age: 41 Year
  Sex: Female
  Weight: 77.11 kg

DRUGS (1)
  1. STEROID [Suspect]
     Dosage: 1-3 MONTHS OR SOON, INJECTED INTO SPINAL AREA

REACTIONS (4)
  - Osteonecrosis [None]
  - Osteonecrosis [None]
  - Pericarditis [None]
  - Lung infection [None]
